FAERS Safety Report 8392276 (Version 5)
Quarter: 2013Q3

REPORT INFORMATION
  Report Type: Report from Study
  Country: MX (occurrence: MX)
  Receive Date: 20120206
  Receipt Date: 20130815
  Transmission Date: 20140515
  Serious: Yes (Hospitalization, Other)
  Sender: FDA-Public Use
  Company Number: PHHY2012MX006833

PATIENT
  Age: 69 Year
  Sex: Female

DRUGS (4)
  1. DIOVAN [Suspect]
     Indication: HYPERTENSION
     Dosage: 1 DF (160 MG), DAILY
  2. DIOVAN [Suspect]
     Dosage: 0.5 DF (320 MG), EVERY 12 HOURS
     Dates: end: 20120123
  3. DIOVAN [Suspect]
     Dosage: 1 TABLET (320 MG), DAILY
     Dates: start: 20120123, end: 201202
  4. INDERALICI [Concomitant]
     Indication: TREMOR
     Dosage: 1 DF, 20 MG
     Dates: start: 1990

REACTIONS (5)
  - Blood pressure increased [Recovered/Resolved]
  - Eye disorder [Not Recovered/Not Resolved]
  - Dizziness [Not Recovered/Not Resolved]
  - Drug ineffective [Not Recovered/Not Resolved]
  - Wrong technique in drug usage process [Not Recovered/Not Resolved]
